FAERS Safety Report 8778294 (Version 1)
Quarter: 2012Q4

REPORT INFORMATION
  Report Type: 
  Country: US (occurrence: US)
  Receive Date: 20120912
  Receipt Date: 20120912
  Transmission Date: 20130627
  Serious: No
  Sender: FDA-Public Use
  Company Number: US-B.I. PHARMACEUTICALS,INC./RIDGEFIELD-2012-BP-22219BP

PATIENT
  Sex: Female

DRUGS (6)
  1. SPIRIVA [Suspect]
     Indication: EMPHYSEMA
     Dosage: 18 mcg
     Route: 055
     Dates: start: 20120820
  2. INDERAL [Concomitant]
     Indication: MITRAL VALVE PROLAPSE
     Dosage: 10 mg
     Dates: start: 1978
  3. LOVAZA [Concomitant]
     Indication: BLOOD CHOLESTEROL INCREASED
     Dosage: 4 g
     Route: 048
     Dates: start: 201207
  4. QUINAPRIL [Concomitant]
     Indication: HYPERTENSION
     Dosage: 5 mg
     Dates: start: 1998
  5. BABY ASPIRIN [Concomitant]
     Dosage: 81 mg
     Route: 048
  6. DIAZEPAM [Concomitant]
     Indication: ANXIETY DISORDER
     Dosage: 10 mg
     Route: 048

REACTIONS (2)
  - Throat tightness [Not Recovered/Not Resolved]
  - Dry mouth [Not Recovered/Not Resolved]
